FAERS Safety Report 9345919 (Version 1)
Quarter: 2013Q2

REPORT INFORMATION
  Report Type: Spontaneous
  Country: GB (occurrence: GB)
  Receive Date: 20130613
  Receipt Date: 20130613
  Transmission Date: 20140414
  Serious: Yes (Other)
  Sender: FDA-Public Use
  Company Number: GB-PFIZER INC-2013173769

PATIENT
  Sex: Female

DRUGS (6)
  1. AMLODIPINE BESILATE [Suspect]
     Indication: HYPERTENSION
     Dosage: 5 MG, UNK
  2. AZITHROMYCIN [Interacting]
     Dosage: 1 DF, THREE DAYS A WEEK
  3. BENDROFLUMETHIAZIDE [Interacting]
     Indication: HYPERTENSION
     Dosage: 2.5 MG, UNK
  4. SALBUTAMOL [Interacting]
     Dosage: TWO PUFFS FOUR TIMES A DAY)
  5. CARBOCISTEINE [Interacting]
     Dosage: 2 DF, 3X/DAY
  6. DOXYCYCLINE [Interacting]
     Dosage: 100 MG, 1X/DAY

REACTIONS (3)
  - Drug interaction [Unknown]
  - Bronchiectasis [Unknown]
  - Condition aggravated [Unknown]
